FAERS Safety Report 5770919-8 (Version None)
Quarter: 2008Q2

REPORT INFORMATION
  Report Type: 
  Country: None (occurrence: None)
  Receive Date: 20080613
  Receipt Date: 20080521
  Transmission Date: 20081010
  Serious: Yes (Other)
  Sender: FDA-Public Use
  Company Number: US-ABBOTT-08P-163-0452722-00

PATIENT
  Sex: Female
  Weight: 68.1 kg

DRUGS (2)
  1. HUMIRA [Suspect]
     Indication: PSORIASIS
     Route: 058
     Dates: start: 20080303, end: 20080401
  2. HUMIRA [Suspect]
     Dates: start: 20080101

REACTIONS (2)
  - BENIGN NEOPLASM OF SKIN [None]
  - SQUAMOUS CELL CARCINOMA [None]
